FAERS Safety Report 5766544-5 (Version None)
Quarter: 2008Q2

REPORT INFORMATION
  Report Type: 
  Country: None (occurrence: None)
  Receive Date: 20080612
  Receipt Date: 20080602
  Transmission Date: 20081010
  Serious: Yes (Death, Hospitalization)
  Sender: FDA-Public Use
  Company Number: CA-ROCHE-559517

PATIENT
  Age: 48 Year
  Sex: Male

DRUGS (13)
  1. NAPROXEN [Suspect]
     Route: 065
  2. TENOFOVIR DISOPROXIL FUMARATE [Suspect]
     Indication: HIV INFECTION
     Route: 065
  3. DIDANOSINE [Suspect]
     Indication: HIV INFECTION
     Route: 065
  4. FUROSEMIDE [Suspect]
     Indication: ASCITES
     Route: 065
  5. SPIRONOLACTONE [Suspect]
     Indication: ASCITES
     Route: 065
  6. LOPINAVIR [Concomitant]
     Indication: HIV INFECTION
  7. RITONAVIR [Concomitant]
     Indication: HIV INFECTION
  8. COTRIM [Concomitant]
  9. COTRIM [Concomitant]
  10. HYDROMORPHONE HCL [Concomitant]
  11. QUININE [Concomitant]
  12. OMEPRAZOLE [Concomitant]
  13. DIMENHYDRINATE [Concomitant]

REACTIONS (1)
  - RENAL TUBULAR NECROSIS [None]
